FAERS Safety Report 7770624-2 (Version None)
Quarter: 2011Q3

REPORT INFORMATION
  Report Type: 
  Country: None (occurrence: None)
  Receive Date: 20110922
  Receipt Date: 20110908
  Transmission Date: 20111222
  Serious: Yes (Disabling, Other)
  Sender: FDA-Public Use
  Company Number: PHEH2009US16955

PATIENT
  Sex: Male

DRUGS (71)
  1. CLINDAMYCIN [Concomitant]
     Dosage: 150 MG, UNK
  2. FOLIC ACID [Concomitant]
     Dosage: 1 MG, UNK
  3. DEXAMETHASONE [Concomitant]
     Dosage: 4 MG, UNK
  4. METRONIDAZOLE [Concomitant]
  5. CHLORHEXIDINE GLUCONATE [Concomitant]
  6. AUGMENTIN '125' [Concomitant]
  7. NEUPOGEN [Concomitant]
  8. VYTORIN [Concomitant]
  9. VALTREX [Concomitant]
  10. LORAZEPAM [Concomitant]
  11. METOPROLOL TARTRATE [Concomitant]
  12. NAVELBINE [Concomitant]
  13. OXYCODONE HCL [Concomitant]
  14. ACCUPRIL [Concomitant]
  15. FAMVIR [Concomitant]
  16. LOPROX [Concomitant]
  17. AVAPRO [Concomitant]
     Dosage: 150 MG, UNK
  18. ATROP [Concomitant]
     Dosage: 2.5 MG, UNK
  19. POTASSIUM CHLORIDE [Concomitant]
     Dosage: 10 MEQ, UNK
  20. PROMETHAZINE W/ CODEINE [Concomitant]
  21. ZYRTEC [Concomitant]
  22. CIPROFLOXACIN [Concomitant]
  23. PHENAZOPYRIDINE HCL TAB [Concomitant]
  24. FLUCONAZOLE [Concomitant]
  25. HYDROMORPHONE HCL [Concomitant]
  26. MUPIROCIN [Concomitant]
  27. ONDANSETRON [Concomitant]
  28. SIMVASTATIN [Concomitant]
  29. ZOMETA [Suspect]
     Indication: METASTASES TO BONE
  30. NOVOBIOCIN [Concomitant]
  31. ACTOS [Concomitant]
  32. ZOVIRAX [Concomitant]
  33. LIPITOR [Concomitant]
  34. BENZONATATE [Concomitant]
  35. GUAIFED-PD [Concomitant]
  36. HYDROCODONE [Concomitant]
  37. PREDNISOLONE ACETATE [Concomitant]
  38. INSULIN [Concomitant]
  39. CARISOPRODOL [Concomitant]
     Dosage: 350 MG, UNK
  40. LANTUS [Concomitant]
  41. PROTONIX [Concomitant]
  42. QUINAPRIL HCL [Concomitant]
  43. DUONEB [Concomitant]
  44. TARCEVA [Concomitant]
  45. DURAGESIC-100 [Concomitant]
  46. ALIMTA [Concomitant]
  47. ZOMETA [Suspect]
     Indication: MULTIPLE MYELOMA
     Dates: start: 20061018, end: 20080101
  48. PENICILLIN VK [Concomitant]
     Dosage: 500 MG, UNK
  49. GLUCOTROL [Concomitant]
  50. NASONEX [Concomitant]
  51. TUSSIONEX [Concomitant]
  52. AZMACORT [Concomitant]
  53. ARANESP [Concomitant]
  54. DOXYCYCLA [Concomitant]
  55. LIDOCAINE [Concomitant]
  56. LEVAQUIN [Concomitant]
  57. HUMIBID [Concomitant]
  58. ZETIA [Concomitant]
  59. ATACAND [Concomitant]
  60. FINASTERIDE [Concomitant]
  61. NEXIUM [Concomitant]
  62. ALPRAZOLAM [Concomitant]
     Dosage: 0.5 MG, UNK
  63. FUROSEMIDE [Concomitant]
     Dosage: 40 MG, UNK
  64. FLOMAX [Concomitant]
  65. ADVANTAGE [Concomitant]
  66. ZITHROMAX [Concomitant]
  67. PROCHLORPERAZINE [Concomitant]
  68. CEPHALEXIN [Concomitant]
  69. CYCLOPHOSPHAMIDE [Concomitant]
  70. NAPROXEN [Concomitant]
  71. SERTRALINE HYDROCHLORIDE [Concomitant]

REACTIONS (70)
  - BONE EROSION [None]
  - ANHEDONIA [None]
  - METASTASES TO LIVER [None]
  - PARONYCHIA [None]
  - URETERAL NEOPLASM [None]
  - EXPOSED BONE IN JAW [None]
  - TOOTH ABSCESS [None]
  - PANCYTOPENIA [None]
  - LEUKOPENIA [None]
  - HAEMATURIA [None]
  - UTERINE MASS [None]
  - EPISTAXIS [None]
  - INSOMNIA [None]
  - JAW FRACTURE [None]
  - DENTAL CARIES [None]
  - HEPATIC MASS [None]
  - METASTASES TO CENTRAL NERVOUS SYSTEM [None]
  - DYSPNOEA [None]
  - PAIN IN EXTREMITY [None]
  - TESTICULAR PAIN [None]
  - INGUINAL HERNIA [None]
  - CORONARY ARTERY DISEASE [None]
  - ASCITES [None]
  - PNEUMOTHORAX [None]
  - HYPOACUSIS [None]
  - NEPHROLITHIASIS [None]
  - SWELLING [None]
  - BACK PAIN [None]
  - NECK PAIN [None]
  - ALOPECIA [None]
  - HYDRONEPHROSIS [None]
  - ATELECTASIS [None]
  - INGROWING NAIL [None]
  - NAUSEA [None]
  - PROSTATE CANCER METASTATIC [None]
  - ARTHRALGIA [None]
  - IMPAIRED HEALING [None]
  - RENAL FAILURE [None]
  - EMPHYSEMA [None]
  - DEPRESSION [None]
  - LYMPHOEDEMA [None]
  - OSTEONECROSIS OF JAW [None]
  - PAIN [None]
  - COUGH [None]
  - METASTASES TO SPINE [None]
  - NON-SMALL CELL LUNG CANCER METASTATIC [None]
  - ANAEMIA [None]
  - SPLEEN DISORDER [None]
  - CARDIAC TAMPONADE [None]
  - INJURY [None]
  - PULMONARY MASS [None]
  - HAND FRACTURE [None]
  - METASTASES TO BONE [None]
  - FALL [None]
  - NEUROPATHY PERIPHERAL [None]
  - DIVERTICULUM INTESTINAL [None]
  - RADICULOPATHY [None]
  - PENILE INFECTION [None]
  - GROIN PAIN [None]
  - VOMITING [None]
  - PROSTATOMEGALY [None]
  - HYPOAESTHESIA [None]
  - HYDROURETER [None]
  - BULLOUS LUNG DISEASE [None]
  - GASTROENTERITIS RADIATION [None]
  - FEMUR FRACTURE [None]
  - ANXIETY [None]
  - HILAR LYMPHADENOPATHY [None]
  - HYDROCELE [None]
  - ARTERIOSCLEROSIS [None]
